FAERS Safety Report 6434386-3 (Version None)
Quarter: 2009Q4

REPORT INFORMATION
  Report Type: 
  Country: None (occurrence: None)
  Receive Date: 20091110
  Receipt Date: 20081003
  Transmission Date: 20100525
  Serious: No
  Sender: FDA-Public Use
  Company Number: US-ASTRAZENECA-2009UW15302

PATIENT
  Age: 85 Year
  Sex: Female

DRUGS (5)
  1. PRILOSEC OTC [Suspect]
     Route: 048
  2. PREMARIN [Concomitant]
     Dosage: UNKNOWN
  3. PROVERA [Concomitant]
     Dosage: UNKNOWN
  4. VALIUM [Concomitant]
     Dosage: UNKNOWN
  5. VITAMINS NOS [Concomitant]
     Dosage: UNKNOWN

REACTIONS (3)
  - INJURY [None]
  - LABELLED DRUG-DRUG INTERACTION MEDICATION ERROR [None]
  - NAIL INJURY [None]
